FAERS Safety Report 7283197-8 (Version None)
Quarter: 2011Q1

REPORT INFORMATION
  Report Type: 
  Country: None (occurrence: None)
  Receive Date: 20110209
  Receipt Date: 20110127
  Transmission Date: 20110831
  Serious: Yes (Disabling)
  Sender: FDA-Public Use
  Company Number: PHHY2010NZ74198

PATIENT
  Age: 70 Year
  Sex: Male

DRUGS (7)
  1. SIBUTRAMINE HYDROCHLORIDE MONOHYDRATE [Concomitant]
  2. PARACETAMOL [Concomitant]
  3. QUINAPRIL [Concomitant]
  4. SANDOSTATIN [Suspect]
     Indication: ACROMEGALY
     Dosage: UNK
     Route: 058
     Dates: start: 20100910, end: 20100917
  5. ASPIRIN [Concomitant]
  6. SANDOSTATIN LAR [Suspect]
     Indication: ACROMEGALY
     Dosage: 20 MG, EVERY 4 WEEKS
     Route: 030
     Dates: start: 20100917
  7. SANDOSTATIN LAR [Suspect]
     Dosage: 20 MG, EVERY 6 WEEKS
     Route: 030

REACTIONS (1)
  - DIARRHOEA [None]
